FAERS Safety Report 13993709 (Version 2)
Quarter: 2019Q4

REPORT INFORMATION
  Report Type: Spontaneous
  Country: US (occurrence: US)
  Receive Date: 20170920
  Receipt Date: 20191209
  Transmission Date: 20200122
  Serious: Yes (Other)
  Sender: FDA-Public Use
  Company Number: US-UCBSA-2017015356

PATIENT
  Age: 41 Year
  Sex: Female
  Weight: 59 kg

DRUGS (5)
  1. CIMZIA [Suspect]
     Active Substance: CERTOLIZUMAB PEGOL
     Indication: PSORIATIC ARTHROPATHY
     Dosage: 400 MG, MONTHLY (QM)
     Route: 058
     Dates: start: 201703
  2. ALLEGRA [Concomitant]
     Active Substance: FEXOFENADINE HYDROCHLORIDE
     Indication: PRODUCT USED FOR UNKNOWN INDICATION
     Dosage: UNK
  3. CLOBETASOL [Concomitant]
     Active Substance: CLOBETASOL
     Indication: PRODUCT USED FOR UNKNOWN INDICATION
     Dosage: UNK, APPLY TO AFFECTED AREA TWICE  A DAY AS NEEDED
  4. CIMZIA [Suspect]
     Active Substance: CERTOLIZUMAB PEGOL
     Indication: ANKYLOSING SPONDYLITIS
     Dosage: UNK EV 2 WEEKS(QOW) (HAD 3 LOADING DOSES)
     Route: 058
     Dates: start: 20170210, end: 201703
  5. DIOVAN HCT [Concomitant]
     Active Substance: HYDROCHLOROTHIAZIDE\VALSARTAN
     Indication: PRODUCT USED FOR UNKNOWN INDICATION
     Dosage: 1 DF, ONCE DAILY (QD)

REACTIONS (8)
  - Abscess [Unknown]
  - Eczema [Recovered/Resolved]
  - Infection [Recovered/Resolved]
  - Rash [Recovered/Resolved]
  - Cellulitis [Unknown]
  - Rash pruritic [Recovered/Resolved]
  - Swelling [Recovered/Resolved]
  - Psoriasis [Recovered/Resolved]

NARRATIVE: CASE EVENT DATE: 2017
